FAERS Safety Report 24292694 (Version 1)
Quarter: 2024Q3

REPORT INFORMATION
  Report Type: Spontaneous
  Country: US (occurrence: None)
  Receive Date: 20240906
  Receipt Date: 20240906
  Transmission Date: 20241017
  Serious: No
  Sender: DOMPE FARMACEUTICI
  Company Number: US-FARMAPROD-202308-202310-2955

PATIENT
  Sex: Female

DRUGS (4)
  1. OXERVATE [Suspect]
     Active Substance: CENEGERMIN-BKBJ
     Indication: Neurotrophic keratopathy
     Route: 047
     Dates: start: 20230830
  2. PEPCID [Concomitant]
     Active Substance: FAMOTIDINE
  3. ARTIFICIAL TEARS [Concomitant]
     Dosage: 0.1%-0.3%
  4. ENHERTU [Concomitant]
     Active Substance: FAM-TRASTUZUMAB DERUXTECAN-NXKI
     Dosage: VIAL

REACTIONS (1)
  - Eye pain [Not Recovered/Not Resolved]
